FAERS Safety Report 9661847 (Version 2)
Quarter: 2013Q4

REPORT INFORMATION
  Report Type: Spontaneous
  Country: US (occurrence: US)
  Receive Date: 20131031
  Receipt Date: 20131031
  Transmission Date: 20140711
  Serious: No
  Sender: FDA-Public Use
  Company Number: US-PURDUE-USA-2010-0049757

PATIENT
  Age: 37 Year
  Sex: Female

DRUGS (2)
  1. OXYCONTIN (NDA 22-272) [Suspect]
     Indication: PAIN
     Dosage: 40 MG, AM
     Dates: start: 201008
  2. OXYCONTIN (NDA 22-272) [Suspect]
     Dosage: 80 MG, PM
     Dates: start: 201008

REACTIONS (3)
  - Abdominal pain upper [Unknown]
  - Drug effect decreased [Unknown]
  - Nausea [Unknown]
